FAERS Safety Report 18841188 (Version 2)
Quarter: 2021Q1

REPORT INFORMATION
  Report Type: Other
  Country: IT (occurrence: IT)
  Receive Date: 20210204
  Receipt Date: 20210305
  Transmission Date: 20210419
  Serious: Yes (Other)
  Sender: FDA-Public Use
  Company Number: IT-CELLTRION INC.-2021IT001025

PATIENT

DRUGS (10)
  1. RITUXIMAB (UNKNOWN) [Suspect]
     Active Substance: RITUXIMAB
     Indication: NON-HODGKIN^S LYMPHOMA
     Dosage: 600 MG, CYCLIC
     Route: 042
     Dates: start: 20200415, end: 20200731
  2. HYDROCORTISONE SODIUM SUCCINATE [Concomitant]
     Active Substance: HYDROCORTISONE SODIUM SUCCINATE
     Indication: INFLAMMATION
     Dosage: 100 MG
     Route: 042
     Dates: start: 20200415
  3. ETOPOSIDE. [Suspect]
     Active Substance: ETOPOSIDE
     Indication: NON-HODGKIN^S LYMPHOMA
     Dosage: 80 MG, CYCLIC
     Route: 042
     Dates: start: 20200504, end: 20200731
  4. CYCLOPHOSPHAMIDE. [Suspect]
     Active Substance: CYCLOPHOSPHAMIDE
     Indication: NON-HODGKIN^S LYMPHOMA
     Dosage: 1200 MG, CYCLIC
     Route: 042
     Dates: start: 20200406, end: 20200731
  5. PARACETAMOL [Concomitant]
     Active Substance: ACETAMINOPHEN
     Indication: ANTIPYRESIS
     Dosage: 1000 MG
     Route: 042
     Dates: start: 20200415
  6. VINCRISTINE SULFATE. [Suspect]
     Active Substance: VINCRISTINE SULFATE
     Indication: NON-HODGKIN^S LYMPHOMA
     Dosage: 1 MG, CYCLIC
     Route: 042
     Dates: start: 20200406, end: 20200731
  7. CHLORPHENAMINE MALEATE [Concomitant]
     Active Substance: CHLORPHENIRAMINE MALEATE
     Indication: VOMITING
     Dosage: 10 MG
     Route: 042
     Dates: start: 20200415
  8. METHOTREXATE. [Suspect]
     Active Substance: METHOTREXATE
     Indication: NON-HODGKIN^S LYMPHOMA
     Dosage: 12.5 MG, CYCLIC
     Route: 042
     Dates: start: 20200508, end: 20200818
  9. GRANISETRON HYDROCHLORIDE. [Concomitant]
     Active Substance: GRANISETRON HYDROCHLORIDE
     Indication: VOMITING
     Dosage: 3 MG
     Route: 042
     Dates: start: 20200406
  10. DOXORUBICIN HYDROCHLORIDE. [Suspect]
     Active Substance: DOXORUBICIN HYDROCHLORIDE
     Indication: NON-HODGKIN^S LYMPHOMA
     Dosage: 80 MG, CYCLIC
     Route: 042
     Dates: start: 20200406, end: 20200731

REACTIONS (5)
  - Neutropenia [Recovering/Resolving]
  - Asthenia [Recovering/Resolving]
  - Lymphopenia [Recovering/Resolving]
  - Thrombocytopenia [Recovering/Resolving]
  - Overdose [Unknown]

NARRATIVE: CASE EVENT DATE: 20200717
